FAERS Safety Report 16943903 (Version 1)
Quarter: 2019Q4

REPORT INFORMATION
  Report Type: Report from Study
  Country: None (occurrence: CA)
  Receive Date: 20191022
  Receipt Date: 20191022
  Transmission Date: 20200122
  Serious: Yes (Hospitalization, Other)
  Sender: FDA-Public Use
  Company Number: CA-ABBVIE-19K-028-2848583-00

PATIENT
  Age: 64 Year
  Sex: Male

DRUGS (2)
  1. HUMIRA [Suspect]
     Active Substance: ADALIMUMAB
     Route: 058
     Dates: start: 20190627, end: 20190905
  2. HUMIRA [Suspect]
     Active Substance: ADALIMUMAB
     Indication: RHEUMATOID ARTHRITIS
     Route: 058
     Dates: start: 20180621, end: 20190502

REACTIONS (4)
  - Knee arthroplasty [Unknown]
  - Knee arthroplasty [Unknown]
  - Surgical failure [Unknown]
  - Arthritis infective [Recovering/Resolving]

NARRATIVE: CASE EVENT DATE: 201905
